FAERS Safety Report 24977439 (Version 1)
Quarter: 2025Q1

REPORT INFORMATION
  Report Type: Spontaneous
  Country: US (occurrence: US)
  Receive Date: 20250217
  Receipt Date: 20250217
  Transmission Date: 20250408
  Serious: Yes (Hospitalization)
  Sender: MERCK SHARP & DOHME LLC
  Company Number: US-SEATTLE GENETICS-2023SGN12319

PATIENT
  Age: 61 Year
  Sex: Female

DRUGS (3)
  1. TUKYSA [Suspect]
     Active Substance: TUCATINIB
     Indication: Product used for unknown indication
     Dosage: DOSE DESCRIPTION : 150 MG 1 TIME A DAY, FILM-COATED TABLET?DAILY DOSE : 150 MILLIGRAM?CONCENTRATI...
     Route: 065
  2. TUKYSA [Suspect]
     Active Substance: TUCATINIB
     Indication: Product used for unknown indication
     Dosage: DOSE DESCRIPTION : 150 MG TAKE 1 TABLET TWICE A DAY, FILM-COATED TABLET?DAILY DOSE : 300 MILLIGRAM
     Route: 065
  3. CRESTOR [Concomitant]
     Active Substance: ROSUVASTATIN CALCIUM

REACTIONS (10)
  - COVID-19 [Unknown]
  - Dehydration [Unknown]
  - Fall [Unknown]
  - Hip fracture [Unknown]
  - Pelvic fracture [Unknown]
  - Fatigue [Unknown]
  - Diarrhoea [Unknown]
  - Arteriosclerosis [Unknown]
  - Off label use [Unknown]
  - Onychomycosis [Unknown]

NARRATIVE: CASE EVENT DATE: 20240101
